FAERS Safety Report 25129518 (Version 1)
Quarter: 2025Q1

REPORT INFORMATION
  Report Type: Spontaneous
  Country: US (occurrence: None)
  Receive Date: 20250327
  Receipt Date: 20250327
  Transmission Date: 20250408
  Serious: Yes (Hospitalization)
  Sender: FDA-CTU
  Company Number: None

PATIENT
  Sex: Female

DRUGS (11)
  1. SKYRIZI [Suspect]
     Active Substance: RISANKIZUMAB-RZAA
     Indication: Psoriasis
     Route: 058
     Dates: start: 20220329
  2. AMLODIPINE [Concomitant]
     Active Substance: AMLODIPINE BESYLATE
  3. BENAZEPRIL TAB 40MG [Concomitant]
  4. CELECOXIB CAP 200MG [Concomitant]
  5. DEPO-PROVERA INJ 150MG/ML [Concomitant]
  6. DULOXETINE CAP 60MG [Concomitant]
  7. INVOKANA TAB 300MG [Concomitant]
  8. LEVOTHYROXIN TAB 150MCG [Concomitant]
  9. LEVOTHYROXIN TAB 175MCG [Concomitant]
  10. METHOCARBAM TAB 750MG [Concomitant]
  11. MONTELUKAST SODIUM [Concomitant]
     Active Substance: MONTELUKAST SODIUM

REACTIONS (4)
  - COVID-19 [None]
  - Therapy interrupted [None]
  - Psoriasis [None]
  - Ear infection [None]
